FAERS Safety Report 8096785-6 (Version None)
Quarter: 2012Q1

REPORT INFORMATION
  Report Type: 
  Country: None (occurrence: None)
  Receive Date: 20120129
  Receipt Date: 20111202
  Transmission Date: 20120608
  Serious: No
  Sender: FDA-Public Use
  Company Number: US-ABBOTT-11P-163-0880385-00

PATIENT
  Age: 54 Year
  Sex: Female

DRUGS (8)
  1. PREDNISONE TAB [Concomitant]
     Indication: RHEUMATOID ARTHRITIS
  2. HUMIRA [Suspect]
     Indication: RHEUMATOID ARTHRITIS
     Dates: start: 20110812
  3. HUMALOG [Concomitant]
     Indication: TYPE 1 DIABETES MELLITUS
     Dosage: PUMP
     Dates: start: 20030101
  4. CYMBALTA [Concomitant]
     Indication: DEPRESSION
  5. METOPROLOL TARTRATE [Concomitant]
     Indication: HEART RATE INCREASED
     Dates: start: 20100101
  6. SYNTHROID [Concomitant]
     Indication: THYROID DISORDER
     Dates: start: 19810101
  7. FOLIC ACID [Concomitant]
     Indication: MEDICAL DIET
  8. CYMBALTA [Concomitant]
     Indication: FIBROMYALGIA

REACTIONS (5)
  - ACTIVITIES OF DAILY LIVING IMPAIRED [None]
  - JOINT SWELLING [None]
  - ARTHRALGIA [None]
  - MOBILITY DECREASED [None]
  - ERYTHEMA [None]
